FAERS Safety Report 7183416-2 (Version None)
Quarter: 2010Q4

REPORT INFORMATION
  Report Type: 
  Country: None (occurrence: None)
  Receive Date: 20101220
  Receipt Date: 20101220
  Transmission Date: 20110411
  Serious: Yes (Hospitalization)
  Sender: FDA-Public Use
  Company Number: None

PATIENT
  Age: 94 Year
  Sex: Female
  Weight: 50 kg

DRUGS (21)
  1. COUMADIN [Suspect]
     Indication: ATRIAL FIBRILLATION
     Dosage: 3MG DAILY PO CHRONIC
     Route: 048
  2. ADVAIR DISKUS 100/50 [Concomitant]
  3. SPIRIVA [Concomitant]
  4. ALBUTEROL [Concomitant]
  5. VIT D [Concomitant]
  6. VANCOMYCIN [Concomitant]
  7. OS-CAL [Concomitant]
  8. TYLENOL [Concomitant]
  9. COREG [Concomitant]
  10. FLORASTOR [Concomitant]
  11. REFAXIMIN [Concomitant]
  12. GUAIFENESIN [Concomitant]
  13. MANNOL [Concomitant]
  14. LASIX [Concomitant]
  15. ZAROXOLYN [Concomitant]
  16. IMODIUM [Concomitant]
  17. VIT B [Concomitant]
  18. FISH OIL [Concomitant]
  19. MAGIC MOUTHWASH [Concomitant]
  20. KLOR-CON [Concomitant]
  21. AMIODARONE [Concomitant]

REACTIONS (6)
  - COUGH [None]
  - DEHYDRATION [None]
  - DIARRHOEA [None]
  - DYSPNOEA [None]
  - HAEMATEMESIS [None]
  - RENAL FAILURE ACUTE [None]
